FAERS Safety Report 5930964-6 (Version None)
Quarter: 2008Q4

REPORT INFORMATION
  Report Type: 
  Country: None (occurrence: None)
  Receive Date: 20081022
  Receipt Date: 20081008
  Transmission Date: 20090506
  Serious: Yes (Death)
  Sender: FDA-Public Use
  Company Number: 2008S1018337

PATIENT
  Age: 18 Year
  Sex: Male

DRUGS (1)
  1. AZATHIOPRINE [Suspect]
     Indication: CROHN'S DISEASE

REACTIONS (6)
  - EPSTEIN-BARR VIRUS ASSOCIATED LYMPHOPROLIFERATIVE DISORDER [None]
  - HEPATOSPLENIC T-CELL LYMPHOMA [None]
  - HEPATOSPLENOMEGALY [None]
  - LYMPHADENOPATHY [None]
  - PANCYTOPENIA [None]
  - PYREXIA [None]
